FAERS Safety Report 5657188-4 (Version None)
Quarter: 2008Q1

REPORT INFORMATION
  Report Type: 
  Country: None (occurrence: None)
  Receive Date: 20080310
  Receipt Date: 20080229
  Transmission Date: 20080703
  Serious: Yes (Other)
  Sender: FDA-Public Use
  Company Number: US-ALLERGAN-0801944US

PATIENT
  Age: 76 Year
  Sex: Male

DRUGS (13)
  1. RESTASIS [Suspect]
     Indication: DRY EYE
     Dosage: UNK, BID
     Route: 047
     Dates: start: 20080130, end: 20080208
  2. RESTASIS [Suspect]
     Dosage: UNK, QD
     Route: 047
     Dates: start: 20080123, end: 20080130
  3. RESTASIS [Suspect]
     Dosage: UNK, QD
     Route: 047
     Dates: start: 20080213, end: 20080219
  4. RESTASIS [Suspect]
     Dosage: UNK, QD
     Route: 047
     Dates: start: 20080221
  5. COUMADIN [Suspect]
     Indication: DRUG USE FOR UNKNOWN INDICATION
     Dosage: 5 MG, QD
     Dates: end: 20080208
  6. COUMADIN [Suspect]
     Dosage: 5 MG, QD
     Dates: start: 20080210
  7. CARAFATE [Concomitant]
     Indication: DRUG USE FOR UNKNOWN INDICATION
  8. INSPRA [Concomitant]
     Indication: DRUG USE FOR UNKNOWN INDICATION
  9. POTASSIUM CHLORIDE [Concomitant]
     Indication: DRUG USE FOR UNKNOWN INDICATION
  10. CALCIUM CITRATE [Concomitant]
     Indication: DRUG USE FOR UNKNOWN INDICATION
  11. MAGNESIUM CITRATE [Concomitant]
     Indication: DRUG USE FOR UNKNOWN INDICATION
  12. AVAPRO [Concomitant]
     Indication: DRUG USE FOR UNKNOWN INDICATION
  13. ACYCLOVIR [Concomitant]
     Indication: HERPES SIMPLEX

REACTIONS (5)
  - DRUG INTERACTION [None]
  - EPISTAXIS [None]
  - HAEMOPTYSIS [None]
  - INTERNATIONAL NORMALISED RATIO INCREASED [None]
  - LOCALISED INFECTION [None]
